FAERS Safety Report 22614678 (Version 2)
Quarter: 2024Q3

REPORT INFORMATION
  Report Type: Report from Study
  Country: CA (occurrence: CA)
  Receive Date: 20230619
  Receipt Date: 20240715
  Transmission Date: 20241017
  Serious: Yes (Other)
  Sender: PIERRE FABRE MEDICAMENT
  Company Number: CA-PFM-2021-06573

PATIENT
  Age: 42 Year
  Sex: Female

DRUGS (6)
  1. PROPRANOLOL HYDROCHLORIDE [Suspect]
     Active Substance: PROPRANOLOL HYDROCHLORIDE
     Indication: Migraine
     Dosage: UNK; 2 EVERY 1 DAYS
     Route: 065
     Dates: end: 202003
  2. PROPRANOLOL HYDROCHLORIDE [Suspect]
     Active Substance: PROPRANOLOL HYDROCHLORIDE
     Indication: Off label use
  3. AIMOVIG [Suspect]
     Active Substance: ERENUMAB-AOOE
     Indication: Migraine
     Dosage: UNK
     Route: 065
  4. TOPIRAMATE [Suspect]
     Active Substance: TOPIRAMATE
     Indication: Migraine
     Dosage: 50 MG, DIE
     Route: 065
     Dates: start: 202003, end: 202005
  5. VERAPAMIL [Suspect]
     Active Substance: VERAPAMIL HYDROCHLORIDE
     Indication: Migraine
     Dosage: UNK
     Route: 065
  6. AMITRIPTYLINE [Concomitant]
     Active Substance: AMITRIPTYLINE
     Indication: Product used for unknown indication
     Dosage: 25 MG, QD (1/DAY)
     Route: 065
     Dates: start: 202002, end: 202005

REACTIONS (16)
  - Cognitive disorder [Unknown]
  - Depression [Unknown]
  - Dizziness [Unknown]
  - Drug intolerance [Unknown]
  - Facial paralysis [Unknown]
  - Migraine [Unknown]
  - Nausea [Unknown]
  - Neck deformity [Unknown]
  - Pain [Unknown]
  - Tinnitus [Unknown]
  - Vomiting [Unknown]
  - Fatigue [Unknown]
  - Poor quality sleep [Unknown]
  - Product use in unapproved indication [Unknown]
  - Product use issue [Unknown]
  - Off label use [Unknown]

NARRATIVE: CASE EVENT DATE: 20200901
